FAERS Safety Report 9122296 (Version 2)
Quarter: 2013Q1

REPORT INFORMATION
  Report Type: Report from Study
  Country: CA (occurrence: CA)
  Receive Date: 20130227
  Receipt Date: 20130321
  Transmission Date: 20140127
  Serious: Yes (Other)
  Sender: FDA-Public Use
  Company Number: CA-JNJFOC-20130212900

PATIENT
  Sex: Female
  Weight: 82 kg

DRUGS (6)
  1. REMICADE [Suspect]
     Indication: COLITIS ULCERATIVE
     Route: 042
  2. REMICADE [Suspect]
     Indication: COLITIS ULCERATIVE
     Dosage: FREQUENCY OF ADMINISTRAION WAS CHANGED AFTER 4 DOSES
     Route: 042
     Dates: start: 201212
  3. PREDNISONE [Concomitant]
     Route: 065
  4. IMURAN [Concomitant]
     Route: 065
  5. MAGNESIUM [Concomitant]
     Route: 065
  6. PANTOPRAZOLE [Concomitant]
     Route: 065

REACTIONS (2)
  - Intestinal operation [Unknown]
  - Drug effect decreased [Not Recovered/Not Resolved]
